FAERS Safety Report 10480618 (Version 1)
Quarter: 2014Q3

REPORT INFORMATION
  Report Type: Spontaneous
  Country: US (occurrence: None)
  Receive Date: 20140904
  Receipt Date: 20140904
  Transmission Date: 20150326
  Serious: No
  Sender: FDA-Public Use
  Company Number: 229039

PATIENT
  Sex: Male

DRUGS (1)
  1. PICATO [Suspect]
     Active Substance: INGENOL MEBUTATE
     Indication: ACTINIC KERATOSIS
     Dosage: (ONCE DAILY X 3 DAYS), TOPICAL
     Route: 061
     Dates: start: 20140621, end: 20140623

REACTIONS (4)
  - Application site erythema [None]
  - Accidental exposure to product [None]
  - Eye irritation [None]
  - Drug administered at inappropriate site [None]

NARRATIVE: CASE EVENT DATE: 20140621
